FAERS Safety Report 9651143 (Version 6)
Quarter: 2014Q1

REPORT INFORMATION
  Report Type: Report from Study
  Country: JP (occurrence: JP)
  Receive Date: 20131029
  Receipt Date: 20140127
  Transmission Date: 20141002
  Serious: Yes (Death, Hospitalization, Other)
  Sender: FDA-Public Use
  Company Number: PHHO2012JP010365

PATIENT
  Age: 71 Year
  Sex: Male
  Weight: 64 kg

DRUGS (37)
  1. ACZ885 [Suspect]
     Indication: CARDIOVASCULAR EVENT PROPHYLAXIS
     Dosage: DOUBLE BLINDED
     Route: 058
     Dates: start: 20120111, end: 20120411
  2. ACZ885 [Suspect]
     Dosage: DOUBLE BLINDED
     Route: 058
     Dates: start: 20120711
  3. LONGERIL [Concomitant]
     Indication: HYPERTENSION
     Dosage: 10 MG, UNK
     Route: 048
     Dates: start: 20111208, end: 20130624
  4. BAYASPIRIN [Concomitant]
     Indication: MYOCARDIAL INFARCTION
     Dosage: 100 MG, UNK
     Route: 048
     Dates: start: 20110421
  5. EPENARD [Concomitant]
     Indication: BACK PAIN
     Dosage: 150 MG, UNK
     Route: 048
     Dates: start: 20110420
  6. PANPYOTIN [Concomitant]
     Indication: CONSTIPATION
     Dosage: 1 G, UNK
     Route: 048
     Dates: start: 20051005, end: 20121003
  7. MAGNESIUM OXIDE [Concomitant]
     Indication: CONSTIPATION
     Dosage: 1 G, UNK
     Route: 048
     Dates: start: 20110420, end: 20121003
  8. ULCERLMIN [Concomitant]
     Indication: GASTRITIS
     Dosage: 3 G, UNK
     Route: 048
     Dates: start: 19960530, end: 20121003
  9. AMLODIPINE [Concomitant]
     Indication: HYPERTENSION
     Dosage: 10 MG, UNK
     Route: 048
     Dates: start: 20081212
  10. LOXOPROFEN [Concomitant]
     Indication: BACK PAIN
     Dosage: 60 MG, UNK
     Route: 048
     Dates: start: 20040804
  11. MEDEPOLIN [Concomitant]
     Indication: ANXIETY DISORDER
     Dosage: 0.4 MG, UNK
     Route: 048
     Dates: start: 20110421
  12. MOHRUS [Concomitant]
     Indication: BACK PAIN
     Dosage: TD
     Dates: start: 20080813
  13. MOHRUS [Concomitant]
     Dosage: TD
     Dates: start: 20110331
  14. NITOROL [Concomitant]
     Indication: POSTINFARCTION ANGINA
     Dosage: 1.25 MG, (IH)
     Dates: start: 20040929
  15. METHYCOBAL [Concomitant]
     Indication: CERVICAL MYELOPATHY
     Dosage: 1500 UG, UNK
     Dates: start: 20110331, end: 20110331
  16. OPALMON [Concomitant]
     Indication: CERVICAL MYELOPATHY
     Dosage: 15 UG, UNK
     Route: 048
     Dates: start: 20110331
  17. NEUROTROPIN [Concomitant]
     Indication: CERVICAL MYELOPATHY
     Dosage: 12 IU, UNK
     Route: 048
     Dates: start: 20110331
  18. HALCION [Concomitant]
     Indication: INSOMNIA
     Dosage: 0.25 MG, UNK
     Route: 048
     Dates: start: 20110331
  19. OMEPRAZOLE [Concomitant]
     Indication: GASTRITIS
     Dosage: 20 MG, UNK
     Route: 048
     Dates: start: 20120303, end: 20120303
  20. GASCON [Concomitant]
     Indication: GASTRITIS
     Dosage: 120 MG, UNK
     Route: 048
     Dates: start: 20120306, end: 20120306
  21. ANTAPENTAN [Concomitant]
     Indication: ECZEMA
     Dosage: TD
     Dates: start: 20120218
  22. LULICON [Concomitant]
     Indication: ONYCHOMYCOSIS
     Dosage: TD
     Dates: start: 20120218
  23. APHTASOLON [Concomitant]
     Indication: STOMATITIS
     Dosage: UNK
     Route: 062
     Dates: start: 20120511
  24. POSTERISAN [Concomitant]
     Dosage: TD
     Dates: start: 19960611
  25. DEXALTIN [Concomitant]
     Dosage: TD
     Dates: start: 20050119
  26. MUCOSTA [Concomitant]
     Indication: GASTRITIS PROPHYLAXIS
     Dosage: UNK
     Route: 048
     Dates: start: 20120827
  27. SOLDANA [Concomitant]
     Indication: CONSTIPATION
     Dosage: UNK
     Route: 048
     Dates: start: 20120827
  28. GASMOTIN [Concomitant]
     Indication: DECREASED APPETITE
     Dosage: 15 MG, UNK
     Route: 048
     Dates: start: 20120915
  29. SPIRONOLACTONE [Concomitant]
     Indication: PLEURAL EFFUSION
     Dosage: 50 MG, UNK
     Route: 048
     Dates: start: 20120920
  30. FAMOSTAGINE [Concomitant]
     Indication: GASTRITIS
     Dosage: 20 MG, UNK
     Route: 048
     Dates: start: 20121116, end: 20130507
  31. FUROSEMIDE [Concomitant]
     Indication: PLEURAL EFFUSION
     Dosage: 20 MG, UNK
     Route: 048
     Dates: start: 20121117, end: 20130825
  32. FUROSEMIDE [Concomitant]
     Dosage: 20 MG, QD
     Dates: start: 20130725
  33. URDESTON [Concomitant]
     Indication: HEPATOCELLULAR CARCINOMA
     Dosage: 300 MG, UNK
     Route: 048
     Dates: start: 20121116, end: 20130825
  34. URDESTON [Concomitant]
     Dosage: 300 MG, QD
     Dates: start: 20130724
  35. MOSAPRIDE CITRATE [Concomitant]
     Indication: DECREASED APPETITE
     Dosage: 15 MG, UNK
     Route: 048
     Dates: start: 20130424, end: 20130825
  36. MOSAPRIDE CITRATE [Concomitant]
     Dosage: 15 MG, QD
     Dates: start: 20130724
  37. HINOPORON [Concomitant]
     Indication: STOMATITIS
     Dosage: TD
     Route: 062
     Dates: start: 20130410

REACTIONS (1)
  - Hepatic cancer recurrent [Fatal]
